FAERS Safety Report 7319041-X (Version None)
Quarter: 2011Q1

REPORT INFORMATION
  Report Type: 
  Country: None (occurrence: None)
  Receive Date: 20110214
  Receipt Date: 20110204
  Transmission Date: 20110831
  Serious: Yes (Other)
  Sender: FDA-Public Use
  Company Number: 027010

PATIENT
  Sex: Female

DRUGS (2)
  1. CIMZIA [Suspect]
     Indication: RHEUMATOID ARTHRITIS
     Dosage: (SUBCUTANEOUS) (SUBCUTANEOUS)
     Route: 058
     Dates: start: 20101210
  2. CIMZIA [Suspect]
     Indication: RHEUMATOID ARTHRITIS
     Dosage: (SUBCUTANEOUS) (SUBCUTANEOUS)
     Route: 058
     Dates: start: 20100806

REACTIONS (1)
  - CHOLECYSTITIS [None]
